FAERS Safety Report 12228246 (Version 1)
Quarter: 2016Q1

REPORT INFORMATION
  Report Type: Spontaneous
  Country: US (occurrence: None)
  Receive Date: 20160330
  Receipt Date: 20160330
  Transmission Date: 20160526
  Serious: Yes (Other)
  Sender: FDA-Public Use
  Company Number: None

PATIENT
  Age: 60 Year
  Sex: Female
  Weight: 74.84 kg

DRUGS (11)
  1. PRAVASTATIN 10 MG [Suspect]
     Active Substance: PRAVASTATIN SODIUM
     Dates: start: 20151221, end: 20151225
  2. CLOPIDOGREL [Concomitant]
     Active Substance: CLOPIDOGREL BISULFATE
  3. DILTIAZEM [Concomitant]
     Active Substance: DILTIAZEM
  4. COENZYME Q10 [Concomitant]
     Active Substance: UBIDECARENONE
  5. LIVALO [Suspect]
     Active Substance: PITAVASTATIN CALCIUM
     Dates: start: 20151104, end: 20151222
  6. VITAMIN D3 [Concomitant]
     Active Substance: CHOLECALCIFEROL
  7. FISH OIL [Concomitant]
     Active Substance: FISH OIL
  8. ATORVASTATIN 10 MG [Suspect]
     Active Substance: ATORVASTATIN
     Indication: BLOOD CHOLESTEROL ABNORMAL
     Dosage: 2 MG 1 PILL 1 X DAY ORAL
     Route: 048
     Dates: start: 20151124, end: 20151215
  9. CALCIUM CITRATE W/VIT D3 [Concomitant]
  10. MULTI VITAMIN W/IRON [Concomitant]
  11. OMEGA 3 [Concomitant]
     Active Substance: OMEGA-3 FATTY ACIDS

REACTIONS (7)
  - Joint lock [None]
  - Arthralgia [None]
  - Gait disturbance [None]
  - Pain in extremity [None]
  - Muscle spasms [None]
  - Burning sensation [None]
  - Trismus [None]
